FAERS Safety Report 7985007-X (Version None)
Quarter: 2011Q4

REPORT INFORMATION
  Report Type: 
  Country: None (occurrence: None)
  Receive Date: 20111216
  Receipt Date: 20111111
  Transmission Date: 20120403
  Serious: No
  Sender: FDA-Public Use
  Company Number: US-ALLERGAN-1114744US

PATIENT
  Age: 39 Year
  Sex: Female

DRUGS (1)
  1. LATISSE [Suspect]
     Indication: GROWTH OF EYELASHES
     Dosage: 2 GTT, QHS
     Route: 061
     Dates: start: 20111001, end: 20111107

REACTIONS (4)
  - SKIN HYPERPIGMENTATION [None]
  - BLEPHAROSPASM [None]
  - PRURITUS [None]
  - DRY EYE [None]
